FAERS Safety Report 9425295 (Version 2)
Quarter: 2013Q4

REPORT INFORMATION
  Report Type: Spontaneous
  Country: DE (occurrence: DE)
  Receive Date: 20130725
  Receipt Date: 20131101
  Transmission Date: 20140711
  Serious: Yes (Hospitalization)
  Sender: FDA-Public Use
  Company Number: AUR-APL-2013-06183

PATIENT
  Age: 42 Year
  Sex: Male
  Weight: 101.1 kg

DRUGS (1)
  1. RAMIPRIL [Suspect]
     Indication: HYPERTENSION
     Route: 048
     Dates: start: 20110926

REACTIONS (3)
  - Erythrodermic psoriasis [None]
  - Chills [None]
  - Post inflammatory pigmentation change [None]
